FAERS Safety Report 6522230-5 (Version None)
Quarter: 2009Q4

REPORT INFORMATION
  Report Type: 
  Country: None (occurrence: None)
  Receive Date: 20091222
  Receipt Date: 20091209
  Transmission Date: 20100525
  Serious: Yes (Death)
  Sender: FDA-Public Use
  Company Number: 2009SP003185

PATIENT
  Age: 54 Year
  Sex: Male
  Weight: 145.2 kg

DRUGS (9)
  1. LUNESTA [Suspect]
     Indication: INSOMNIA
     Dosage: 2 MG; ORAL
     Route: 048
     Dates: start: 20091101, end: 20091115
  2. SEROQUEL [Concomitant]
  3. PERCOCET [Concomitant]
  4. MS CONTIN [Concomitant]
  5. VITAMIN B12 /00056201/ [Concomitant]
  6. OTHER ANTI-ASTHMATICS, INHALANTS [Concomitant]
  7. TRAZODONE HCL [Concomitant]
  8. CORTICOSTEROIDS [Concomitant]
  9. AMBIEN [Concomitant]

REACTIONS (1)
  - MULTIPLE DRUG OVERDOSE [None]
